FAERS Safety Report 8585521-2 (Version None)
Quarter: 2012Q3

REPORT INFORMATION
  Report Type: 
  Country: None (occurrence: None)
  Receive Date: 20120810
  Receipt Date: 20120726
  Transmission Date: 20120928
  Serious: Yes (Other)
  Sender: FDA-Public Use
  Company Number: PL-MSD-1207POL009212

PATIENT

DRUGS (1)
  1. SYCREST [Suspect]
     Indication: DEPRESSIVE DELUSION
     Dosage: 20 MG, QD
     Route: 060
     Dates: start: 20111001, end: 20120301

REACTIONS (8)
  - DYSGEUSIA [None]
  - RESPIRATORY TRACT OEDEMA [None]
  - HYPOAESTHESIA ORAL [None]
  - BURNING SENSATION [None]
  - WEIGHT INCREASED [None]
  - PRODUCT TASTE ABNORMAL [None]
  - VOMITING [None]
  - TONGUE DISORDER [None]
